FAERS Safety Report 14493264 (Version 2)
Quarter: 2018Q1

REPORT INFORMATION
  Report Type: Spontaneous
  Country: FI (occurrence: FI)
  Receive Date: 20180206
  Receipt Date: 20180215
  Transmission Date: 20180509
  Serious: Yes (Other)
  Sender: FDA-Public Use
  Company Number: FI-JNJFOC-20180122582

PATIENT
  Sex: Female

DRUGS (9)
  1. EVOREL [Concomitant]
     Route: 065
     Dates: start: 201707
  2. SALAZOPYRIN [Concomitant]
     Active Substance: SULFASALAZINE
     Indication: ARTHROPATHY
     Route: 065
  3. VITAMIN D [Concomitant]
     Active Substance: CHOLECALCIFEROL
     Route: 065
  4. VITAMINS C [Concomitant]
     Route: 065
  5. EVOREL [Concomitant]
     Indication: MENOPAUSE
     Route: 065
  6. SIMPONI [Suspect]
     Active Substance: GOLIMUMAB
     Indication: SAPHO SYNDROME
     Route: 058
     Dates: start: 2013
  7. DIPROSALIC [Concomitant]
     Active Substance: BETAMETHASONE DIPROPIONATE
     Indication: RASH
     Route: 065
  8. DERMOVATE [Concomitant]
     Active Substance: CLOBETASOL
     Indication: RASH
     Route: 065
  9. BIOTIINI [Concomitant]
     Route: 065

REACTIONS (5)
  - Raynaud^s phenomenon [Not Recovered/Not Resolved]
  - Menopausal symptoms [Not Recovered/Not Resolved]
  - Product use in unapproved indication [Unknown]
  - Thyroiditis [Not Recovered/Not Resolved]
  - Off label use [Unknown]

NARRATIVE: CASE EVENT DATE: 2013
